FAERS Safety Report 25192206 (Version 1)
Quarter: 2025Q2

REPORT INFORMATION
  Report Type: Spontaneous
  Country: US (occurrence: None)
  Receive Date: 20250412
  Receipt Date: 20250412
  Transmission Date: 20250716
  Serious: Yes (Hospitalization)
  Sender: FDA-CTU
  Company Number: None

PATIENT
  Age: 44 Year
  Sex: Male

DRUGS (11)
  1. SKYRIZI [Suspect]
     Active Substance: RISANKIZUMAB-RZAA
     Indication: Crohn^s disease
     Route: 058
     Dates: start: 20240515
  2. ASPIRIN CHW 81MG [Concomitant]
  3. HUMIRA [Concomitant]
     Active Substance: ADALIMUMAB
  4. HUMIRA PEN KIT CD/UC/HS [Concomitant]
  5. IBUPROFEN TAB 400MG [Concomitant]
  6. KETOROLAC TAB 10MG [Concomitant]
  7. LIDOCAINE PAD5% [Concomitant]
  8. METOPROLOL SUCCINATE [Concomitant]
     Active Substance: METOPROLOL SUCCINATE
  9. OMEPRAZOLE [Concomitant]
     Active Substance: OMEPRAZOLE
  10. ONDANSETRON TAB 4MG DDT [Concomitant]
  11. OSEL TAMIVIR CAP 75MG [Concomitant]

REACTIONS (2)
  - Crohn^s disease [None]
  - Therapy interrupted [None]

NARRATIVE: CASE EVENT DATE: 20250407
